FAERS Safety Report 18426983 (Version 1)
Quarter: 2020Q4

REPORT INFORMATION
  Report Type: Spontaneous
  Country: US (occurrence: US)
  Receive Date: 20201026
  Receipt Date: 20201026
  Transmission Date: 20210114
  Serious: Yes (Other)
  Sender: FDA-Public Use
  Company Number: None

PATIENT

DRUGS (3)
  1. CHILDRENS TYLENOL [Suspect]
     Active Substance: ACETAMINOPHEN
  2. GOOD NEIGHBOR PHARMACY CHILDRENS PAIN AND FEVER [Suspect]
     Active Substance: ACETAMINOPHEN
  3. NEPHRON IPRATROPIUM BROMIDE INHALATION SOLUTION, 0.02% NEB, 2.5ML [Suspect]
     Active Substance: IPRATROPIUM BROMIDE

REACTIONS (2)
  - Blood culture positive [None]
  - Burkholderia test positive [None]
